FAERS Safety Report 21386822 (Version 1)
Quarter: 2022Q3

REPORT INFORMATION
  Report Type: Spontaneous
  Country: FR (occurrence: FR)
  Receive Date: 20220928
  Receipt Date: 20220928
  Transmission Date: 20221026
  Serious: Yes (Other)
  Sender: FDA-Public Use
  Company Number: None

PATIENT
  Age: 45 Year
  Sex: Male
  Weight: 79 kg

DRUGS (4)
  1. IRINOTECAN [Suspect]
     Active Substance: IRINOTECAN
     Indication: Rectal cancer
     Dosage: 2100 MG, 1X
     Route: 042
     Dates: start: 20220509, end: 20220719
  2. OXALIPLATIN [Suspect]
     Active Substance: OXALIPLATIN
     Indication: Rectal cancer
     Dosage: 150 MG/ CURE
     Route: 042
     Dates: start: 20220509, end: 20220719
  3. FLUOROURACIL [Suspect]
     Active Substance: FLUOROURACIL
     Indication: Rectal cancer
     Dosage: 3950 MG/ CURE
     Route: 042
     Dates: start: 20220509, end: 20220719
  4. CALCIUM [Concomitant]
     Active Substance: CALCIUM
     Indication: Rectal cancer
     Dosage: 400MG/CURE
     Route: 042
     Dates: start: 20220509, end: 20220719

REACTIONS (1)
  - Pulmonary embolism [Not Recovered/Not Resolved]

NARRATIVE: CASE EVENT DATE: 20220726
